FAERS Safety Report 20615797 (Version 5)
Quarter: 2022Q3

REPORT INFORMATION
  Report Type: Report from Study
  Country: US (occurrence: US)
  Receive Date: 20220321
  Receipt Date: 20220628
  Transmission Date: 20221027
  Serious: Yes (Other)
  Sender: FDA-Public Use
  Company Number: US-NOVARTISTESTPH-NVSC2022US063495

PATIENT
  Sex: Male

DRUGS (1)
  1. ENTRESTO [Suspect]
     Active Substance: SACUBITRIL\VALSARTAN
     Indication: Product used for unknown indication
     Dosage: UNK UNK, (STARTED APPROX 2 WEEKS AGO)
     Route: 048

REACTIONS (9)
  - Suicide attempt [Unknown]
  - Skin haemorrhage [Unknown]
  - Blood glucose increased [Recovering/Resolving]
  - Decreased appetite [Unknown]
  - Weight decreased [Unknown]
  - Blood magnesium decreased [Unknown]
  - Rash macular [Unknown]
  - Blood pressure decreased [Unknown]
  - Product dose omission issue [Unknown]
